FAERS Safety Report 16979959 (Version 1)
Quarter: 2019Q4

REPORT INFORMATION
  Report Type: Spontaneous
  Country: CA (occurrence: CA)
  Receive Date: 20191031
  Receipt Date: 20191031
  Transmission Date: 20200122
  Serious: Yes (Other)
  Sender: FDA-Public Use
  Company Number: CA-GLAXOSMITHKLINE-CA2019AMR193685

PATIENT
  Sex: Male

DRUGS (1)
  1. TRELEGY ELLIPTA [Suspect]
     Active Substance: FLUTICASONE FUROATE\UMECLIDINIUM BROMIDE\VILANTEROL TRIFENATATE
     Indication: CHRONIC OBSTRUCTIVE PULMONARY DISEASE
     Dosage: UNK

REACTIONS (9)
  - Immobile [Unknown]
  - Asthenia [Unknown]
  - Neck injury [Unknown]
  - Clumsiness [Unknown]
  - Paralysis [Unknown]
  - Fall [Unknown]
  - Condition aggravated [Unknown]
  - Back injury [Unknown]
  - Limb discomfort [Unknown]
